FAERS Safety Report 9277851 (Version 2)
Quarter: 2013Q2

REPORT INFORMATION
  Report Type: Spontaneous
  Country: US (occurrence: US)
  Receive Date: 20130508
  Receipt Date: 20130621
  Transmission Date: 20140414
  Serious: No
  Sender: FDA-Public Use
  Company Number: US-BIOGENIDEC-2013BI040214

PATIENT
  Sex: Female

DRUGS (1)
  1. TYSABRI [Suspect]
     Indication: MULTIPLE SCLEROSIS
     Route: 042
     Dates: start: 20121107, end: 201303

REACTIONS (6)
  - Type 1 diabetes mellitus [Not Recovered/Not Resolved]
  - White blood cell count increased [Not Recovered/Not Resolved]
  - Tobacco user [Recovered/Resolved]
  - Blood glucose increased [Recovered/Resolved]
  - Leukocytosis [Unknown]
  - Fatigue [Recovered/Resolved]
